FAERS Safety Report 10083203 (Version 2)
Quarter: 2014Q2

REPORT INFORMATION
  Report Type: Spontaneous
  Country: IE (occurrence: IE)
  Receive Date: 20140417
  Receipt Date: 20140507
  Transmission Date: 20141212
  Serious: Yes (Other)
  Sender: FDA-Public Use
  Company Number: IE-009507513-1404IRL005191

PATIENT
  Age: 69 Year
  Sex: Male

DRUGS (4)
  1. TEMOZOLOMIDE [Suspect]
     Indication: GLIOBLASTOMA MULTIFORME
     Dosage: 150 MG/M2, 5 DAYS A WEEK FOR FIRST MONTH
     Route: 048
  2. TEMOZOLOMIDE [Suspect]
     Dosage: UNK
     Route: 048
  3. ENOXAPARIN SODIUM [Concomitant]
     Indication: DEEP VEIN THROMBOSIS
     Dosage: 1 MG/KG, BID
     Route: 058
  4. ENOXAPARIN SODIUM [Concomitant]
     Indication: PULMONARY EMBOLISM

REACTIONS (3)
  - Central nervous system lymphoma [Unknown]
  - Bone marrow failure [Unknown]
  - Lymphopenia [Unknown]
